FAERS Safety Report 7505540-4 (Version None)
Quarter: 2011Q2

REPORT INFORMATION
  Report Type: 
  Country: None (occurrence: None)
  Receive Date: 20110526
  Receipt Date: 20110517
  Transmission Date: 20111010
  Serious: Yes (Hospitalization, Other)
  Sender: FDA-Public Use
  Company Number: US-ASTRAZENECA-2011SE30491

PATIENT
  Age: 67 Year
  Sex: Male

DRUGS (2)
  1. CRESTOR [Suspect]
     Route: 048
  2. ZESTRIL [Suspect]
     Route: 048

REACTIONS (3)
  - STENT PLACEMENT [None]
  - AORTIC ARTERIOSCLEROSIS [None]
  - MYOCARDIAL INFARCTION [None]
